FAERS Safety Report 18333238 (Version 1)
Quarter: 2020Q4

REPORT INFORMATION
  Report Type: Spontaneous
  Country: DE (occurrence: DE)
  Receive Date: 20201001
  Receipt Date: 20201001
  Transmission Date: 20210113
  Serious: Yes (Death, Life-Threatening, Hospitalization)
  Sender: FDA-Public Use
  Company Number: DE-TEVA-2020-DE-1832526

PATIENT
  Age: 70 Year
  Sex: Male

DRUGS (4)
  1. IMATINIB. [Suspect]
     Active Substance: IMATINIB MESYLATE
     Dosage: 400 MILLIGRAM DAILY;  0-0-1-0
  2. PANKREATIN [Concomitant]
     Active Substance: PANCRELIPASE
     Dosage: 10, 000 IU, WITH MEAL
  3. PANTOPRAZOL [Concomitant]
     Active Substance: PANTOPRAZOLE SODIUM
     Dosage: 40 MILLIGRAM DAILY; 1-0-0-0
  4. LEVOTHYROXIN-NATRIUM [Concomitant]
     Active Substance: LEVOTHYROXINE SODIUM
     Dosage: 50 MICROGRAM DAILY; 1-0-0-0

REACTIONS (4)
  - Haematemesis [Unknown]
  - Anaemia [Unknown]
  - Haematochezia [Unknown]
  - Vomiting [Unknown]
